FAERS Safety Report 14319025 (Version 4)
Quarter: 2018Q3

REPORT INFORMATION
  Report Type: Report from Study
  Country: US (occurrence: US)
  Receive Date: 20171222
  Receipt Date: 20180709
  Transmission Date: 20181010
  Serious: Yes (Hospitalization)
  Sender: FDA-Public Use
  Company Number: US-ACTELION-A-NJ2017-163161

PATIENT
  Age: 73 Year
  Sex: Female
  Weight: 66.67 kg

DRUGS (3)
  1. ADEMPAS [Concomitant]
     Active Substance: RIOCIGUAT
  2. OPSUMIT [Suspect]
     Active Substance: MACITENTAN
     Indication: PULMONARY ARTERIAL HYPERTENSION
     Dosage: 10 MG, QD
     Route: 048
     Dates: start: 20180225
  3. NIFEDIPINE. [Concomitant]
     Active Substance: NIFEDIPINE

REACTIONS (13)
  - Stasis syndrome [Unknown]
  - Abdominal pain [Unknown]
  - Gastritis [Unknown]
  - Diabetic gastropathy [Unknown]
  - Syncope [Unknown]
  - Chest pain [Unknown]
  - Nausea [Unknown]
  - Facial paralysis [Unknown]
  - Adverse event [Unknown]
  - Weight decreased [Unknown]
  - Dyspnoea [Unknown]
  - Vomiting [Unknown]
  - Dyspnoea exertional [Unknown]

NARRATIVE: CASE EVENT DATE: 20180503
